FAERS Safety Report 9024950 (Version 1)
Quarter: 2012Q4

REPORT INFORMATION
  Report Type: Spontaneous
  Country: US (occurrence: None)
  Receive Date: 20121231
  Receipt Date: 20121231
  Transmission Date: 20130627
  Serious: Yes (Disabling, Other)
  Sender: FDA-Public Use
  Company Number: ACO_33469_2012

PATIENT
  Age: 46 Year
  Sex: Female
  Weight: 63.5 kg

DRUGS (6)
  1. AMPYRA (DALFAMPRIDINE) TABLET, 10MG [Suspect]
     Indication: GAIT DISTURBANCE
     Dates: start: 20121214, end: 20121218
  2. SYNTHROID (LEVOTHYROXINE SODIUM) [Concomitant]
  3. BETASERON (INTERFERON BETA-1B) [Concomitant]
  4. KLONOPIN (CLONAZEPAM) (TABLETS) [Concomitant]
  5. FIORICET (BUTALBITAL, CAFFEINE, PARACETAMOL) [Concomitant]
  6. AMBIEN (ZOLPIDEM TARTRATE) [Concomitant]

REACTIONS (4)
  - Blindness [None]
  - Optic neuritis [None]
  - Balance disorder [None]
  - Dizziness [None]
